FAERS Safety Report 26075729 (Version 4)
Quarter: 2025Q4

REPORT INFORMATION
  Report Type: Spontaneous
  Country: US (occurrence: US)
  Receive Date: 20251121
  Receipt Date: 20251218
  Transmission Date: 20260118
  Serious: Yes (Hospitalization)
  Sender: KARYOPHARM THERAPEUTICS
  Company Number: US-KARYOPHARM-2025KPT100979

PATIENT

DRUGS (12)
  1. SELINEXOR [Suspect]
     Active Substance: SELINEXOR
     Indication: Plasma cell myeloma
     Dosage: 80 MG TWICE WEEKLY
     Route: 048
     Dates: start: 20251119, end: 2025
  2. ELIQUIS [Concomitant]
     Active Substance: APIXABAN
  3. BENZONATATE [Concomitant]
     Active Substance: BENZONATATE
  4. REPATHA [Concomitant]
     Active Substance: EVOLOCUMAB
  5. HYDROMORPHONE [Concomitant]
     Active Substance: HYDROMORPHONE
  6. TRADJENTA [Concomitant]
     Active Substance: LINAGLIPTIN
  7. ESCITALOPRAM [Concomitant]
     Active Substance: ESCITALOPRAM OXALATE
  8. CARVEDILOL [Concomitant]
     Active Substance: CARVEDILOL
  9. DUTASTERIDE [Concomitant]
     Active Substance: DUTASTERIDE
  10. VALACYCLOVIR [Concomitant]
     Active Substance: VALACYCLOVIR HYDROCHLORIDE
  11. PANTOPRAZOLE [Concomitant]
     Active Substance: PANTOPRAZOLE
  12. PROCHLORPERAZINE [Concomitant]
     Active Substance: PROCHLORPERAZINE

REACTIONS (4)
  - Renal disorder [Unknown]
  - Irritability [Unknown]
  - Nausea [Not Recovered/Not Resolved]
  - Decreased appetite [Not Recovered/Not Resolved]

NARRATIVE: CASE EVENT DATE: 20250101
